FAERS Safety Report 10391452 (Version 1)
Quarter: 2014Q3

REPORT INFORMATION
  Report Type: Other
  Country: DE (occurrence: DE)
  Receive Date: 20140818
  Receipt Date: 20140818
  Transmission Date: 20150326
  Serious: Yes (Death)
  Sender: FDA-Public Use
  Company Number: DE-MYLAN-2014M1001073

PATIENT

DRUGS (2)
  1. DIPIPERON [Concomitant]
     Active Substance: PIPAMPERONE
     Route: 048
  2. CLOZAPINE. [Suspect]
     Active Substance: CLOZAPINE
     Indication: AGGRESSION
     Route: 048

REACTIONS (2)
  - Thrombocytopenia [Fatal]
  - Leukopenia [Fatal]

NARRATIVE: CASE EVENT DATE: 20140704
